FAERS Safety Report 5523450-9 (Version None)
Quarter: 2007Q4

REPORT INFORMATION
  Report Type: 
  Country: None (occurrence: None)
  Receive Date: 20071121
  Receipt Date: 20071112
  Transmission Date: 20080405
  Serious: Yes (Other)
  Sender: FDA-Public Use
  Company Number: US-AMGEN-STX252218

PATIENT
  Sex: Female

DRUGS (6)
  1. ENBREL [Suspect]
     Indication: RHEUMATOID ARTHRITIS
     Route: 058
     Dates: start: 20010601
  2. PROVIGIL [Concomitant]
     Dates: start: 20020101
  3. LASIX [Concomitant]
  4. MICARDIS [Concomitant]
  5. PREMARIN [Concomitant]
  6. HERBAL SUPPLEMENT [Concomitant]

REACTIONS (5)
  - FATIGUE [None]
  - JOINT ARTHROPLASTY [None]
  - KNEE ARTHROPLASTY [None]
  - NO THERAPEUTIC RESPONSE [None]
  - VACCINATION COMPLICATION [None]
